FAERS Safety Report 23631005 (Version 1)
Quarter: 2024Q1

REPORT INFORMATION
  Report Type: Other
  Country: US (occurrence: None)
  Receive Date: 20240314
  Receipt Date: 20240314
  Transmission Date: 20240410
  Serious: Yes (Other)
  Sender: FDA-Public Use
  Company Number: US-ROCHE-3522187

PATIENT

DRUGS (1)
  1. XOLAIR [Suspect]
     Active Substance: OMALIZUMAB
     Indication: Product used for unknown indication
     Route: 065

REACTIONS (12)
  - Angioedema [Unknown]
  - Ear congestion [Unknown]
  - Pruritus [Unknown]
  - Muscle spasms [Unknown]
  - Rhinitis [Unknown]
  - Dyspnoea [Unknown]
  - Infection [Unknown]
  - Narcolepsy [Unknown]
  - Mechanical urticaria [Unknown]
  - Abdominal pain upper [Unknown]
  - Nausea [Unknown]
  - Dizziness [Unknown]
